FAERS Safety Report 7228343-7 (Version None)
Quarter: 2011Q1

REPORT INFORMATION
  Report Type: 
  Country: None (occurrence: None)
  Receive Date: 20110114
  Receipt Date: 20110110
  Transmission Date: 20110831
  Serious: Yes (Other)
  Sender: FDA-Public Use
  Company Number: US-US-EMD SERONO, INC.-7035898

PATIENT
  Sex: Female

DRUGS (3)
  1. NOVANTRONE [Suspect]
     Indication: MULTIPLE SCLEROSIS
     Dates: start: 20040101
  2. REBIF [Suspect]
     Dates: start: 20100101, end: 20101101
  3. REBIF [Suspect]
     Indication: MULTIPLE SCLEROSIS
     Dates: start: 20101019, end: 20100101

REACTIONS (5)
  - HYPOAESTHESIA [None]
  - MALAISE [None]
  - HEART VALVE INCOMPETENCE [None]
  - BLINDNESS UNILATERAL [None]
  - ASTHENIA [None]
